FAERS Safety Report 15229517 (Version 2)
Quarter: 2018Q4

REPORT INFORMATION
  Report Type: Spontaneous
  Country: CZ (occurrence: CZ)
  Receive Date: 20180802
  Receipt Date: 20181031
  Transmission Date: 20190204
  Serious: Yes (Hospitalization, Other)
  Sender: FDA-Public Use
  Company Number: CZ-CONCORDIA PHARMACEUTICALS INC.-GSH201807-002712

PATIENT
  Age: 38 Year
  Sex: Female

DRUGS (4)
  1. PREDNISONE. [Suspect]
     Active Substance: PREDNISONE
     Indication: VASCULITIS NECROTISING
     Dosage: DOSE BELOW 10 MG
     Route: 065
  2. AZATHIOPRINE. [Concomitant]
     Active Substance: AZATHIOPRINE
     Indication: VASCULITIS NECROTISING
  3. HYDROXYCHLOROQUINE [Suspect]
     Active Substance: HYDROXYCHLOROQUINE
     Indication: VASCULITIS NECROTISING
     Route: 065
  4. METHOTREXATE. [Suspect]
     Active Substance: METHOTREXATE
     Indication: VASCULITIS NECROTISING
     Route: 065

REACTIONS (7)
  - Papule [Unknown]
  - Off label use [Unknown]
  - Rebound effect [Unknown]
  - Vasculitis necrotising [Unknown]
  - Condition aggravated [Unknown]
  - Blister [Unknown]
  - Skin lesion [Unknown]
